FAERS Safety Report 24970764 (Version 2)
Quarter: 2025Q1

REPORT INFORMATION
  Report Type: Spontaneous
  Country: FR (occurrence: None)
  Receive Date: 20250214
  Receipt Date: 20250218
  Transmission Date: 20250408
  Serious: Yes (Hospitalization)
  Sender: ORION
  Company Number: None

PATIENT
  Age: 73 Year
  Sex: Female

DRUGS (2)
  1. METHOTREXATE [Interacting]
     Active Substance: METHOTREXATE
     Indication: Rheumatoid arthritis
     Dates: end: 20240419
  2. ARAVA [Interacting]
     Active Substance: LEFLUNOMIDE
     Indication: Rheumatoid arthritis
     Dosage: STRENGTH: 20 MG
     Dates: end: 20240419

REACTIONS (3)
  - Pancytopenia [Not Recovered/Not Resolved]
  - Overdose [Unknown]
  - Drug interaction [Unknown]

NARRATIVE: CASE EVENT DATE: 20240419
